FAERS Safety Report 6824310-3 (Version None)
Quarter: 2010Q3

REPORT INFORMATION
  Report Type: 
  Country: None (occurrence: None)
  Receive Date: 20100708
  Receipt Date: 20061018
  Transmission Date: 20110219
  Serious: No
  Sender: FDA-Public Use
  Company Number: US-PFIZER INC-2006127744

PATIENT
  Sex: Female
  Weight: 62.14 kg

DRUGS (8)
  1. CHANTIX [Suspect]
     Indication: SMOKING CESSATION THERAPY
     Route: 048
     Dates: start: 20060101
  2. BUPROPION HCL [Concomitant]
     Dates: end: 20060101
  3. ADVAIR DISKUS 100/50 [Concomitant]
  4. VENTOLIN [Concomitant]
  5. SYNTHROID [Concomitant]
  6. MOBIC [Concomitant]
  7. PREMARIN [Concomitant]
  8. LEVSIN [Concomitant]

REACTIONS (1)
  - NAUSEA [None]
